FAERS Safety Report 6544053-3 (Version None)
Quarter: 2010Q1

REPORT INFORMATION
  Report Type: 
  Country: None (occurrence: None)
  Receive Date: 20100119
  Receipt Date: 20100119
  Transmission Date: 20100710
  Serious: No
  Sender: FDA-Public Use
  Company Number: None

PATIENT
  Sex: Female
  Weight: 113.3993 kg

DRUGS (2)
  1. TYLENOL (CAPLET) [Suspect]
     Indication: MYALGIA
     Dosage: WEEK TO WEEKS
     Dates: start: 20091201, end: 20100112
  2. TYLENOL (CAPLET) [Suspect]
     Indication: MYALGIA
     Dosage: WEEK TO WEEKS
     Dates: start: 20100116, end: 20100118

REACTIONS (8)
  - ABDOMINAL PAIN UPPER [None]
  - CHEST PAIN [None]
  - DIARRHOEA [None]
  - DYSPNOEA [None]
  - HEADACHE [None]
  - NAUSEA [None]
  - PAIN [None]
  - VOMITING [None]
